FAERS Safety Report 8737664 (Version 6)
Quarter: 2013Q2

REPORT INFORMATION
  Report Type: Spontaneous
  Country: US (occurrence: US)
  Receive Date: 20120822
  Receipt Date: 20130425
  Transmission Date: 20140414
  Serious: Yes (Hospitalization, Other)
  Sender: FDA-Public Use
  Company Number: US-009507513-1208USA001524

PATIENT
  Sex: Female
  Weight: 71.25 kg

DRUGS (17)
  1. FOSAMAX [Suspect]
     Indication: OSTEOPOROSIS
     Dosage: 70 MG, UNK
     Route: 048
     Dates: start: 200111, end: 200803
  2. FOSAMAX [Suspect]
     Indication: OSTEOPENIA
  3. FOSAMAX PLUS D [Suspect]
     Dosage: 70 MG, UNK
     Route: 048
     Dates: start: 200803, end: 200901
  4. FOSAMAX [Suspect]
     Indication: OSTEOPOROSIS
     Route: 048
  5. FOSAMAX [Suspect]
     Indication: OSTEOPENIA
  6. FOSAMAX [Suspect]
     Dosage: 70 MG, QW
     Route: 048
  7. CALCIUM (UNSPECIFIED) [Concomitant]
     Dosage: 1000 MG, UNK
     Route: 048
     Dates: start: 1995
  8. VITAMIN B (UNSPECIFIED) [Concomitant]
     Dosage: 100 MG, UNK
     Dates: start: 1995
  9. CYANOCOBALAMIN [Concomitant]
     Dosage: 1500 MG, UNK
     Dates: start: 1995
  10. CHOLECALCIFEROL [Concomitant]
     Dosage: 2000 MG, UNK
     Dates: start: 1995
  11. FLAXSEED [Concomitant]
     Dosage: 1300 MG, UNK
     Dates: start: 1995
  12. HORMONES (UNSPECIFIED) [Concomitant]
     Dosage: UNK
     Dates: start: 1987
  13. ACTONEL [Concomitant]
     Indication: OSTEOPENIA
     Dosage: UNK
     Dates: start: 200307, end: 200308
  14. ASCORBIC ACID [Concomitant]
     Dosage: 500 MG, UNK
  15. ALLEGRA [Concomitant]
     Indication: HYPERSENSITIVITY
  16. CLARITIN [Concomitant]
     Indication: HYPERSENSITIVITY
  17. ZYRTEC [Concomitant]
     Indication: HYPERSENSITIVITY

REACTIONS (67)
  - Femur fracture [Unknown]
  - Hip arthroplasty [Unknown]
  - Prolapse repair [Unknown]
  - Colporrhaphy [Unknown]
  - Rectocele repair [Unknown]
  - Joint surgery [Unknown]
  - Cataract operation [Unknown]
  - Osteoarthritis [Recovering/Resolving]
  - Limb asymmetry [Not Recovered/Not Resolved]
  - Foot deformity [Unknown]
  - Blood cholesterol increased [Unknown]
  - Jaw disorder [Unknown]
  - Road traffic accident [Unknown]
  - Dermatitis [Unknown]
  - Uterine prolapse [Unknown]
  - Polyp [Unknown]
  - Hysterectomy [Unknown]
  - Enterocele [Unknown]
  - Rectocele [Unknown]
  - Telangiectasia [Unknown]
  - Umbilical hernia [Unknown]
  - Lumbar radiculopathy [Unknown]
  - Rotator cuff syndrome [Unknown]
  - Foot deformity [Unknown]
  - Klebsiella infection [Unknown]
  - Gait disturbance [Not Recovered/Not Resolved]
  - Onychomycosis [Unknown]
  - Blood pressure systolic increased [Unknown]
  - Arthropod bite [Unknown]
  - Haemorrhoids [Unknown]
  - Autoimmune disorder [Unknown]
  - Swelling [Unknown]
  - Cardiac aneurysm [Unknown]
  - Urinary tract infection [Unknown]
  - Synovial cyst [Unknown]
  - Urinary tract infection enterococcal [Recovering/Resolving]
  - Pathogen resistance [Unknown]
  - Renal cyst [Unknown]
  - Spinal pain [Unknown]
  - Cataract [Unknown]
  - Post procedural infection [Unknown]
  - Intervertebral discitis [Recovered/Resolved]
  - Osteomyelitis [Recovered/Resolved]
  - Osteoarthritis [Unknown]
  - Osteoarthritis [Unknown]
  - Spinal osteoarthritis [Unknown]
  - Dilatation ventricular [Unknown]
  - Faecal incontinence [Unknown]
  - Vertebral wedging [Unknown]
  - Kyphosis [Unknown]
  - Actinic keratosis [Unknown]
  - Cystitis [Unknown]
  - Milia [Unknown]
  - Dysphonia [Recovering/Resolving]
  - Carpal tunnel syndrome [Unknown]
  - Conjunctivitis [Unknown]
  - Muscle tightness [Recovering/Resolving]
  - Foot deformity [Unknown]
  - Hypertension [Unknown]
  - Fatigue [Unknown]
  - Incorrect dose administered [Unknown]
  - Varicose vein [Unknown]
  - Neck pain [Unknown]
  - Alopecia [Unknown]
  - Joint swelling [Unknown]
  - Back pain [Unknown]
  - Drug ineffective [Unknown]
